FAERS Safety Report 8168879-8 (Version None)
Quarter: 2012Q1

REPORT INFORMATION
  Report Type: 
  Country: None (occurrence: None)
  Receive Date: 20120227
  Receipt Date: 20120217
  Transmission Date: 20120608
  Serious: Yes (Hospitalization)
  Sender: FDA-Public Use
  Company Number: US-ABBOTT-12P-163-0905994-00

PATIENT
  Age: 20 Year
  Sex: Female

DRUGS (5)
  1. HUMIRA [Suspect]
     Indication: CROHN'S DISEASE
     Dosage: SECONDARY LOADING DOSE ON 31 JAN 2012
     Dates: start: 20120119
  2. IRON [Concomitant]
     Indication: MINERAL SUPPLEMENTATION
     Dosage: DAILY
  3. PREDNISONE [Concomitant]
     Indication: PRODUCT USED FOR UNKNOWN INDICATION
  4. CALCIUM [Concomitant]
     Indication: MINERAL SUPPLEMENTATION
     Dosage: DAILY
  5. PREVACID [Concomitant]
     Indication: DYSPEPSIA
     Dosage: DAILY

REACTIONS (6)
  - MALAISE [None]
  - NUTRITIONAL CONDITION ABNORMAL [None]
  - DRUG INEFFECTIVE [None]
  - ABDOMINAL DISTENSION [None]
  - INTESTINAL OBSTRUCTION [None]
  - PAIN [None]
